FAERS Safety Report 20142889 (Version 3)
Quarter: 2022Q1

REPORT INFORMATION
  Report Type: Spontaneous
  Country: US (occurrence: US)
  Receive Date: 20211202
  Receipt Date: 20220131
  Transmission Date: 20220423
  Serious: No
  Sender: FDA-Public Use
  Company Number: US-BIOVITRUM-2021US11521

PATIENT
  Sex: Female
  Weight: 9 kg

DRUGS (13)
  1. SYNAGIS [Suspect]
     Active Substance: PALIVIZUMAB
     Indication: Atrial septal defect
     Route: 030
     Dates: start: 20211012
  2. SYNAGIS [Suspect]
     Active Substance: PALIVIZUMAB
     Indication: Atrioventricular septal defect
     Route: 030
     Dates: start: 20201225, end: 202112
  3. SYNAGIS [Suspect]
     Active Substance: PALIVIZUMAB
     Indication: Premature baby
  4. SYNAGIS [Suspect]
     Active Substance: PALIVIZUMAB
     Indication: Neonatal respiratory distress syndrome
  5. SYNAGIS [Suspect]
     Active Substance: PALIVIZUMAB
     Indication: Pulmonary hypertension
  6. SYNAGIS [Suspect]
     Active Substance: PALIVIZUMAB
     Indication: Respiratory syncytial virus infection
  7. PANTOPRAZOLE SODIUM 20 MG TABLET DR [Concomitant]
  8. SODIUM CHLORIDE 0.9% VIAL [Concomitant]
  9. EPINEPHRINE [Concomitant]
     Active Substance: EPINEPHRINE
  10. FUROSEMIDE 40MG/5ML SOLUTION [Concomitant]
  11. MULTIVITAMIN 9MG/15 ML LIQUID [Concomitant]
  12. SILDENAFIL CITRATE [Concomitant]
     Active Substance: SILDENAFIL CITRATE
  13. VITAMIN D3 10(400)/ML DROPS [Concomitant]

REACTIONS (3)
  - Weight decreased [Unknown]
  - Off label use [Unknown]
  - Product dose omission issue [Unknown]
